FAERS Safety Report 5417870-0 (Version None)
Quarter: 2007Q3

REPORT INFORMATION
  Report Type: 
  Country: None (occurrence: None)
  Receive Date: 20070817
  Receipt Date: 20070809
  Transmission Date: 20080115
  Serious: Yes (Other)
  Sender: FDA-Public Use
  Company Number: US-JNJFOC-20070800808

PATIENT
  Age: 22 Year
  Sex: Female
  Weight: 95.26 kg

DRUGS (5)
  1. INVEGA [Suspect]
     Indication: SCHIZOAFFECTIVE DISORDER
     Route: 048
  2. ABILIFY [Concomitant]
     Indication: SCHIZOAFFECTIVE DISORDER
     Route: 048
  3. CYMBALTA [Concomitant]
     Indication: SCHIZOAFFECTIVE DISORDER
  4. TOPAMAX [Concomitant]
     Indication: NEURALGIA
  5. LO-OGESTREL [Concomitant]
     Indication: MENSTRUATION IRREGULAR

REACTIONS (1)
  - URINARY RETENTION [None]
